FAERS Safety Report 12160615 (Version 1)
Quarter: 2016Q1

REPORT INFORMATION
  Report Type: Spontaneous
  Country: RU (occurrence: RU)
  Receive Date: 20160308
  Receipt Date: 20160308
  Transmission Date: 20160526
  Serious: Yes (Death)
  Sender: FDA-Public Use
  Company Number: RU-B. BRAUN MEDICAL INC.-1048811

PATIENT
  Age: 74 Year
  Sex: Female

DRUGS (1)
  1. HESPAN?? 0264-1965-10 [Suspect]
     Active Substance: HETASTARCH\SODIUM CHLORIDE
     Route: 042

REACTIONS (1)
  - Embolism [None]
